FAERS Safety Report 8521648-9 (Version None)
Quarter: 2012Q3

REPORT INFORMATION
  Report Type: 
  Country: None (occurrence: None)
  Receive Date: 20120719
  Receipt Date: 20120716
  Transmission Date: 20120928
  Serious: Yes (Life-Threatening, Other)
  Sender: FDA-Public Use
  Company Number: PHHY2012CA053984

PATIENT
  Sex: Male

DRUGS (3)
  1. EXJADE [Suspect]
     Indication: LEUKAEMIA
     Dosage: 1500 MG, DAILY
     Route: 048
     Dates: start: 20120705
  2. EXJADE [Suspect]
     Indication: IRON OVERLOAD
  3. HYDREA [Concomitant]

REACTIONS (1)
  - LEUKAEMIA RECURRENT [None]
